FAERS Safety Report 6570964-9 (Version None)
Quarter: 2010Q1

REPORT INFORMATION
  Report Type: 
  Country: None (occurrence: None)
  Receive Date: 20100203
  Receipt Date: 20100203
  Transmission Date: 20100710
  Serious: No
  Sender: FDA-Public Use
  Company Number: None

PATIENT
  Age: 64 Year
  Sex: Female
  Weight: 41.3 kg

DRUGS (2)
  1. TETRACYCLINE [Suspect]
     Indication: PEMPHIGUS
     Dosage: 500MG FOUR TIMES A DAY PO
     Route: 048
     Dates: start: 20080501, end: 20100116
  2. BULLICAL NOT AVAILABLE NOT AVAILABLE [Suspect]
     Indication: PEMPHIGUS
     Dosage: NOT KNOWN BID X 50 DAYS PO
     Route: 048
     Dates: start: 20091128, end: 20100116

REACTIONS (11)
  - ABASIA [None]
  - ASTHENIA [None]
  - CHILLS [None]
  - DECREASED APPETITE [None]
  - DIZZINESS [None]
  - FAECAL INCONTINENCE [None]
  - FAILURE TO THRIVE [None]
  - FATIGUE [None]
  - METAL POISONING [None]
  - PAIN [None]
  - SKIN DISCOLOURATION [None]
